FAERS Safety Report 24268014 (Version 1)
Quarter: 2024Q3

REPORT INFORMATION
  Report Type: Spontaneous
  Country: DE (occurrence: DE)
  Receive Date: 20240830
  Receipt Date: 20240830
  Transmission Date: 20241017
  Serious: No
  Sender: UCB
  Company Number: DE-UCBSA-2024044018

PATIENT
  Age: 75 Year
  Sex: Male

DRUGS (1)
  1. NEUPRO [Suspect]
     Active Substance: ROTIGOTINE
     Indication: Parkinson^s disease
     Dosage: 4 MILLIGRAM, ONCE DAILY (QD) (THERAPY STARTED 2-3 YRS)
     Route: 062

REACTIONS (2)
  - Product adhesion issue [Unknown]
  - Product dose omission issue [Unknown]
